FAERS Safety Report 9902418 (Version 3)
Quarter: 2014Q2

REPORT INFORMATION
  Report Type: Spontaneous
  Country: US (occurrence: US)
  Receive Date: 20140217
  Receipt Date: 20140502
  Transmission Date: 20141212
  Serious: Yes (Life-Threatening, Hospitalization, Disabling)
  Sender: FDA-Public Use
  Company Number: US-JNJFOC-20140204036

PATIENT
  Age: 45 Year
  Sex: Male
  Weight: 90.72 kg

DRUGS (9)
  1. STELARA [Suspect]
     Indication: PSORIASIS
     Route: 058
     Dates: start: 20131226
  2. PREDNISONE [Suspect]
     Indication: PSORIASIS
     Dates: start: 20131226, end: 20140125
  3. PREDNISONE [Suspect]
     Indication: PSORIASIS
  4. PREDNISONE [Suspect]
     Indication: PSORIASIS
  5. PREDNISONE [Suspect]
     Indication: PSORIASIS
  6. KENALOG [Concomitant]
     Indication: PSORIASIS
     Route: 030
     Dates: start: 20131104, end: 20131224
  7. MEDROL [Concomitant]
     Indication: PSORIASIS
     Route: 065
     Dates: start: 20131212
  8. ATARAX [Concomitant]
     Indication: PRURITUS
  9. VANOS [Concomitant]
     Route: 065
     Dates: start: 20131114

REACTIONS (1)
  - Pneumonia [Recovering/Resolving]
